FAERS Safety Report 7865372-4 (Version None)
Quarter: 2011Q4

REPORT INFORMATION
  Report Type: 
  Country: None (occurrence: None)
  Receive Date: 20111028
  Receipt Date: 20101207
  Transmission Date: 20120403
  Serious: No
  Sender: FDA-Public Use
  Company Number: US-GLAXOSMITHKLINE-A0898377A

PATIENT
  Sex: Female

DRUGS (4)
  1. POTASSIUM [Concomitant]
  2. LIPITOR [Concomitant]
  3. DYAZIDE [Concomitant]
  4. ADVAIR DISKUS 100/50 [Suspect]
     Indication: ASTHMA
     Dosage: 1PUFF TWICE PER DAY
     Route: 055
     Dates: start: 20050101

REACTIONS (5)
  - DRY MOUTH [None]
  - DRY THROAT [None]
  - ORAL PAIN [None]
  - BUCCAL MUCOSAL ROUGHENING [None]
  - GINGIVAL ULCERATION [None]
